FAERS Safety Report 8608773-9 (Version None)
Quarter: 2012Q3

REPORT INFORMATION
  Report Type: 
  Country: None (occurrence: None)
  Receive Date: 20120821
  Receipt Date: 20120815
  Transmission Date: 20120928
  Serious: No
  Sender: FDA-Public Use
  Company Number: US-B.I. PHARMACEUTICALS,INC./RIDGEFIELD-2012-BP-19568BP

PATIENT
  Sex: Male

DRUGS (4)
  1. CLONAZEPAM [Concomitant]
     Indication: INSOMNIA
     Route: 048
  2. METOPROLOL TARTRATE [Concomitant]
     Indication: HYPERTENSION
     Dosage: 50 MG
     Route: 048
  3. SYNTHROID [Concomitant]
     Indication: HYPOTHYROIDISM
     Dosage: 100 MCG
     Route: 048
  4. PRADAXA [Suspect]
     Indication: ATRIAL FIBRILLATION
     Dosage: 300 MG
     Route: 048
     Dates: start: 20120301, end: 20120301

REACTIONS (4)
  - FACIAL PAIN [None]
  - URTICARIA [None]
  - SWELLING FACE [None]
  - LYMPHADENOPATHY [None]
